FAERS Safety Report 20460612 (Version 1)
Quarter: 2022Q1

REPORT INFORMATION
  Report Type: Spontaneous
  Country: US (occurrence: US)
  Receive Date: 20220211
  Receipt Date: 20220211
  Transmission Date: 20220423
  Serious: No
  Sender: FDA-Public Use
  Company Number: US-BAYER-2022A021404

PATIENT
  Age: 36 Year
  Sex: Female

DRUGS (1)
  1. MIRENA [Suspect]
     Active Substance: LEVONORGESTREL
     Indication: Contraception
     Dosage: 20?G/DAY
     Route: 015
     Dates: start: 20220128, end: 20220128

REACTIONS (6)
  - Presyncope [Unknown]
  - Procedural nausea [Unknown]
  - Procedural dizziness [Unknown]
  - Hot flush [Unknown]
  - Vision blurred [Unknown]
  - Complication of device insertion [None]

NARRATIVE: CASE EVENT DATE: 20220128
